FAERS Safety Report 19983673 (Version 3)
Quarter: 2021Q4

REPORT INFORMATION
  Report Type: Report from Study
  Country: CO (occurrence: CO)
  Receive Date: 20211022
  Receipt Date: 20211224
  Transmission Date: 20220303
  Serious: Yes (Life-Threatening, Hospitalization, Other)
  Sender: FDA-Public Use
  Company Number: CO-ABBVIE-21K-036-4131620-00

PATIENT
  Age: 65 Year
  Sex: Female
  Weight: 68 kg

DRUGS (2)
  1. ZEMPLAR [Suspect]
     Active Substance: PARICALCITOL
     Indication: Chronic kidney disease
     Route: 048
     Dates: start: 20201023, end: 20210617
  2. ZEMPLAR [Suspect]
     Active Substance: PARICALCITOL
     Indication: Hyperparathyroidism secondary

REACTIONS (9)
  - Myocardial infarction [Recovering/Resolving]
  - Blood glucose abnormal [Recovering/Resolving]
  - General physical health deterioration [Recovering/Resolving]
  - Skin laceration [Recovering/Resolving]
  - Bacterial infection [Recovering/Resolving]
  - Leg amputation [Recovering/Resolving]
  - Unevaluable event [Recovering/Resolving]
  - Depressed mood [Recovering/Resolving]
  - Discouragement [Recovering/Resolving]

NARRATIVE: CASE EVENT DATE: 20210901
